FAERS Safety Report 19740288 (Version 1)
Quarter: 2021Q3

REPORT INFORMATION
  Report Type: Spontaneous
  Country: US (occurrence: US)
  Receive Date: 20210824
  Receipt Date: 20210824
  Transmission Date: 20211014
  Serious: Yes (Hospitalization)
  Sender: FDA-Public Use
  Company Number: US-GLAXOSMITHKLINE-US2021175961

PATIENT
  Age: 76 Year
  Sex: Male
  Weight: 99.79 kg

DRUGS (1)
  1. TRELEGY ELLIPTA [Suspect]
     Active Substance: FLUTICASONE FUROATE\UMECLIDINIUM BROMIDE\VILANTEROL TRIFENATATE
     Indication: CHRONIC OBSTRUCTIVE PULMONARY DISEASE
     Dosage: TRELEGY ELLIPTA 100/62.5/25 MCG
     Dates: start: 202106

REACTIONS (2)
  - Micturition disorder [Unknown]
  - Renal surgery [Recovered/Resolved with Sequelae]

NARRATIVE: CASE EVENT DATE: 20210819
